FAERS Safety Report 19980190 (Version 1)
Quarter: 2021Q4

REPORT INFORMATION
  Report Type: Other
  Country: US (occurrence: US)
  Receive Date: 20211021
  Receipt Date: 20211021
  Transmission Date: 20220303
  Serious: Yes (Other)
  Sender: FDA-Public Use
  Company Number: US-ROCHE-2934861

PATIENT

DRUGS (7)
  1. BEVACIZUMAB [Suspect]
     Active Substance: BEVACIZUMAB
     Indication: Glioblastoma multiforme
     Route: 065
  2. CARBOPLATIN [Suspect]
     Active Substance: CARBOPLATIN
     Indication: Glioblastoma multiforme
     Route: 065
  3. CARMUSTINE [Suspect]
     Active Substance: CARMUSTINE
     Indication: Glioblastoma multiforme
     Route: 065
  4. CYCLOPHOSPHAMIDE [Suspect]
     Active Substance: CYCLOPHOSPHAMIDE
     Indication: Glioblastoma multiforme
     Route: 065
  5. IRINOTECAN [Suspect]
     Active Substance: IRINOTECAN
     Indication: Glioblastoma multiforme
     Route: 065
  6. LOMUSTINE [Suspect]
     Active Substance: LOMUSTINE
     Indication: Glioblastoma multiforme
     Route: 065
  7. TEMOZOLOMIDE [Suspect]
     Active Substance: TEMOZOLOMIDE
     Indication: Glioblastoma multiforme
     Route: 065

REACTIONS (36)
  - White blood cell count decreased [Unknown]
  - Epistaxis [Unknown]
  - Leukopenia [Unknown]
  - Lymphopenia [Unknown]
  - Neutropenia [Unknown]
  - Thrombocytopenia [Unknown]
  - Fatigue [Unknown]
  - Pneumonia [Unknown]
  - Rectal haemorrhage [Unknown]
  - Seizure [Unknown]
  - Hemiparesis [Unknown]
  - Dermatitis exfoliative [Unknown]
  - Decreased appetite [Unknown]
  - Skin irritation [Unknown]
  - Amnesia [Unknown]
  - Asthenia [Unknown]
  - Coordination abnormal [Unknown]
  - Dizziness [Unknown]
  - Headache [Unknown]
  - Insomnia [Unknown]
  - Taste disorder [Unknown]
  - Pyrexia [Unknown]
  - Rhinitis [Unknown]
  - Viral infection [Unknown]
  - Hypertension [Unknown]
  - Blood creatinine increased [Unknown]
  - Proteinuria [Unknown]
  - Constipation [Unknown]
  - Diarrhoea [Unknown]
  - Nausea [Unknown]
  - Vomiting [Unknown]
  - Alopecia [Unknown]
  - Dry skin [Unknown]
  - Lacrimation disorder [Unknown]
  - Medical device site reaction [Unknown]
  - Rash [Unknown]
